FAERS Safety Report 4712638-2 (Version None)
Quarter: 2005Q3

REPORT INFORMATION
  Report Type: 
  Country: None (occurrence: None)
  Receive Date: 20050711
  Receipt Date: 20050629
  Transmission Date: 20060218
  Serious: Yes (Death, Hospitalization, Other)
  Sender: FDA-Public Use
  Company Number: SUS1-2005-00159

PATIENT
  Age: 52 Year
  Sex: Male
  Weight: 80.5135 kg

DRUGS (15)
  1. FOSRENOL [Suspect]
     Indication: HYPERPHOSPHATAEMIA
     Dosage: 500 MG 3X/DAY TID
     Dates: start: 20050228, end: 20050417
  2. GLUCOTROL [Concomitant]
  3. AVANDIA [Concomitant]
  4. ZEMPLAR [Concomitant]
  5. EPOGEN [Concomitant]
  6. VENOFER [Concomitant]
  7. ATORVASTATIN CALCIUM [Concomitant]
  8. METOPROLOL TARTRATE [Concomitant]
  9. MULTI-VITAMINS VITAFIT (VITAMINS NOS, FOLIF ACID, CALCIUM PANTOTHENATE [Concomitant]
  10. AMLODIPINE [Concomitant]
  11. PANTOPRAZOLE SODIUM [Concomitant]
  12. ASPIRIN [Concomitant]
  13. LASIX [Concomitant]
  14. QUININE SULFATE [Concomitant]
  15. PLAVIX [Concomitant]

REACTIONS (16)
  - ABDOMINAL PAIN [None]
  - ARTERIOVENOUS GRAFT THROMBOSIS [None]
  - CARDIO-RESPIRATORY ARREST [None]
  - CARDIOMEGALY [None]
  - CORONARY ARTERY OCCLUSION [None]
  - CORONARY ARTERY STENOSIS [None]
  - EXTREMITY NECROSIS [None]
  - FOOT AMPUTATION [None]
  - GASTRODUODENITIS HAEMORRHAGIC [None]
  - HEPATOSPLENOMEGALY [None]
  - HYPERGLYCAEMIA [None]
  - MYOCARDIAL INFARCTION [None]
  - PERIPHERAL VASCULAR DISORDER [None]
  - PULMONARY EMBOLISM [None]
  - TOE AMPUTATION [None]
  - VASCULAR GRAFT COMPLICATION [None]
